FAERS Safety Report 7281292-0 (Version None)
Quarter: 2011Q1

REPORT INFORMATION
  Report Type: 
  Country: None (occurrence: None)
  Receive Date: 20110208
  Receipt Date: 20110207
  Transmission Date: 20110831
  Serious: No
  Sender: FDA-Public Use
  Company Number: US-ROXANE LABORATORIES, INC.-2011-RO-00155RO

PATIENT
  Sex: Male

DRUGS (4)
  1. METOCLOPRAMIDE [Suspect]
     Dates: start: 20030601, end: 20040301
  2. METOCLOPRAMIDE [Suspect]
     Dates: start: 20030601, end: 20040301
  3. REGLAN [Suspect]
     Dates: start: 20030601, end: 20040301
  4. REGLAN [Suspect]
     Dates: start: 20030601, end: 20040301

REACTIONS (4)
  - RESTLESS LEGS SYNDROME [None]
  - PARKINSON'S DISEASE [None]
  - OROMANDIBULAR DYSTONIA [None]
  - DYSKINESIA [None]
